FAERS Safety Report 6171441-X (Version None)
Quarter: 2009Q2

REPORT INFORMATION
  Report Type: 
  Country: None (occurrence: None)
  Receive Date: 20090429
  Receipt Date: 20090421
  Transmission Date: 20091009
  Serious: Yes (Hospitalization, Other)
  Sender: FDA-Public Use
  Company Number: US-AMGEN-QUU341885

PATIENT
  Sex: Male

DRUGS (1)
  1. ENBREL [Suspect]
     Indication: RHEUMATOID ARTHRITIS
     Route: 058
     Dates: start: 20070501

REACTIONS (5)
  - ASTHENIA [None]
  - DIPLOPIA [None]
  - FACIAL PALSY [None]
  - GLOSSOPHARYNGEAL NERVE PARALYSIS [None]
  - LYME DISEASE [None]
